FAERS Safety Report 15076684 (Version 1)
Quarter: 2018Q2

REPORT INFORMATION
  Report Type: Spontaneous
  Country: PL (occurrence: PL)
  Receive Date: 20180627
  Receipt Date: 20180627
  Transmission Date: 20180711
  Serious: Yes (Other)
  Sender: FDA-Public Use
  Company Number: PL-PFIZER INC-2018256051

PATIENT
  Age: 30 Year
  Sex: Female

DRUGS (1)
  1. DOSTINEX [Suspect]
     Active Substance: CABERGOLINE
     Indication: BLOOD PROLACTIN ABNORMAL
     Dosage: UNK

REACTIONS (4)
  - Impulsive behaviour [Unknown]
  - Abnormal behaviour [Unknown]
  - Emotional disorder [Unknown]
  - Intentional self-injury [Unknown]
